FAERS Safety Report 4748748-3 (Version None)
Quarter: 2005Q3

REPORT INFORMATION
  Report Type: 
  Country: None (occurrence: None)
  Receive Date: 20050817
  Receipt Date: 20050802
  Transmission Date: 20060218
  Serious: Yes (Hospitalization)
  Sender: FDA-Public Use
  Company Number: 2005BI014642

PATIENT
  Age: 51 Year
  Sex: Female
  Weight: 97.977 kg

DRUGS (15)
  1. AMEVIVE [Suspect]
     Indication: PSORIASIS
     Dosage: 15 MG; QW; IM
     Route: 030
     Dates: start: 20050628, end: 20050701
  2. PROTONIX [Concomitant]
  3. THYROID TAB [Concomitant]
  4. ZOCOR [Concomitant]
  5. POTASSIUM CHLORIDE [Concomitant]
  6. LISINOPRIL [Concomitant]
  7. ELAVIL [Concomitant]
  8. ADVAIR DISKUS 100/50 [Concomitant]
  9. ALBUTEROL [Concomitant]
  10. REMERON [Concomitant]
  11. ISORDIL [Concomitant]
  12. XOPENEX [Concomitant]
  13. METOPROLOL [Concomitant]
  14. CUMBALTA [Concomitant]
  15. DEMADEX [Concomitant]

REACTIONS (2)
  - CHEST PAIN [None]
  - THROMBOSIS [None]
